FAERS Safety Report 5136339-4 (Version None)
Quarter: 2006Q4

REPORT INFORMATION
  Report Type: 
  Country: None (occurrence: None)
  Receive Date: 20061027
  Receipt Date: 20061023
  Transmission Date: 20070319
  Serious: Yes (Death)
  Sender: FDA-Public Use
  Company Number: AR-BRACCO-BRO-010778

PATIENT
  Age: 62 Year
  Sex: Female

DRUGS (2)
  1. IOPAMIRON [Suspect]
     Route: 037
     Dates: start: 20061013, end: 20061013
  2. MORPHINA [Concomitant]
     Route: 050

REACTIONS (3)
  - CARDIAC ARREST [None]
  - CLONIC CONVULSION [None]
  - DEATH [None]
